FAERS Safety Report 11808349 (Version 1)
Quarter: 2015Q4

REPORT INFORMATION
  Report Type: Spontaneous
  Country: US (occurrence: US)
  Receive Date: 20151207
  Receipt Date: 20151207
  Transmission Date: 20160305
  Serious: No
  Sender: FDA-Public Use
  Company Number: US-ROCHE-1523773

PATIENT
  Sex: Male

DRUGS (9)
  1. DILANTIN [Concomitant]
     Active Substance: PHENYTOIN
     Route: 065
  2. LAMICTAL [Concomitant]
     Active Substance: LAMOTRIGINE
     Route: 065
  3. CLONIDINE. [Concomitant]
     Active Substance: CLONIDINE
  4. VALIUM [Suspect]
     Active Substance: DIAZEPAM
     Indication: CORTICAL DYSPLASIA
     Route: 065
  5. INTUNIV [Concomitant]
     Active Substance: GUANFACINE HYDROCHLORIDE
     Route: 065
  6. DEPAKOTE [Concomitant]
     Active Substance: DIVALPROEX SODIUM
  7. KEPPRA [Concomitant]
     Active Substance: LEVETIRACETAM
     Route: 065
  8. ZYPREXA [Concomitant]
     Active Substance: OLANZAPINE
  9. TRILEPTAL [Concomitant]
     Active Substance: OXCARBAZEPINE
     Route: 065

REACTIONS (8)
  - Suicidal ideation [Not Recovered/Not Resolved]
  - Psychomotor hyperactivity [Not Recovered/Not Resolved]
  - Psychotic disorder [Not Recovered/Not Resolved]
  - Anger [Not Recovered/Not Resolved]
  - Lethargy [Not Recovered/Not Resolved]
  - Insomnia [Not Recovered/Not Resolved]
  - Fatigue [Not Recovered/Not Resolved]
  - Homicidal ideation [Not Recovered/Not Resolved]
